FAERS Safety Report 4417386-4 (Version None)
Quarter: 2004Q3

REPORT INFORMATION
  Report Type: 
  Country: None (occurrence: None)
  Receive Date: 20040802
  Receipt Date: 20040729
  Transmission Date: 20050211
  Serious: Yes (Hospitalization)
  Sender: FDA-Public Use
  Company Number: TAP2004Q00955

PATIENT
  Age: 61 Year
  Sex: Male

DRUGS (1)
  1. LUPRON DEPOT [Suspect]
     Indication: PROSTATE CANCER
     Dosage: 10 MG, 1 IN 13 WK,
     Dates: start: 19950101

REACTIONS (4)
  - DIFFICULTY IN WALKING [None]
  - MUSCULOSKELETAL DISORDER [None]
  - MYOCLONUS [None]
  - SPEECH DISORDER [None]
